FAERS Safety Report 8099148-2 (Version None)
Quarter: 2012Q1

REPORT INFORMATION
  Report Type: 
  Country: None (occurrence: None)
  Receive Date: 20120129
  Receipt Date: 20111004
  Transmission Date: 20120608
  Serious: No
  Sender: FDA-Public Use
  Company Number: US-ABBOTT-11P-163-0860542-00

PATIENT
  Sex: Male
  Weight: 65.376 kg

DRUGS (5)
  1. HUMIRA [Suspect]
     Indication: PSORIASIS
     Route: 058
     Dates: start: 20110419, end: 20111004
  2. SKELAXIN [Concomitant]
     Indication: BACK PAIN
  3. RESTORIL [Concomitant]
     Indication: SLEEP DISORDER
  4. IBUPROFEN [Concomitant]
     Indication: PRODUCT USED FOR UNKNOWN INDICATION
  5. DIOVAN [Concomitant]
     Indication: HYPERTENSION

REACTIONS (8)
  - VOMITING [None]
  - NAUSEA [None]
  - INSOMNIA [None]
  - HEADACHE [None]
  - DECREASED APPETITE [None]
  - PYREXIA [None]
  - WEIGHT DECREASED [None]
  - FATIGUE [None]
